FAERS Safety Report 16361852 (Version 1)
Quarter: 2019Q3

REPORT INFORMATION
  Report Type: Spontaneous
  Country: US (occurrence: US)
  Receive Date: 20190524
  Receipt Date: 20190524
  Transmission Date: 20191004
  Serious: Yes (Other)
  Sender: FDA-Public Use
  Company Number: None

PATIENT
  Age: 65 Year
  Sex: Female

DRUGS (3)
  1. HYDROCODONE [Suspect]
     Active Substance: HYDROCODONE
     Indication: ARTHRITIS
     Dosage: ?          QUANTITY:5 CAPSULE(S);?
     Route: 048
     Dates: start: 20190423, end: 20190427
  2. HYDROCODONE [Suspect]
     Active Substance: HYDROCODONE
     Indication: FIBROMYALGIA
     Dosage: ?          QUANTITY:5 CAPSULE(S);?
     Route: 048
     Dates: start: 20190423, end: 20190427
  3. HYDROCODONE [Suspect]
     Active Substance: HYDROCODONE
     Indication: SPINAL STENOSIS
     Dosage: ?          QUANTITY:5 CAPSULE(S);?
     Route: 048
     Dates: start: 20190423, end: 20190427

REACTIONS (5)
  - Lethargy [None]
  - Joint swelling [None]
  - Drug ineffective [None]
  - Product substitution issue [None]
  - Influenza like illness [None]

NARRATIVE: CASE EVENT DATE: 20190423
